FAERS Safety Report 18655513 (Version 1)
Quarter: 2020Q4

REPORT INFORMATION
  Report Type: Spontaneous
  Country: FR (occurrence: FR)
  Receive Date: 20201223
  Receipt Date: 20201223
  Transmission Date: 20210114
  Serious: Yes (Other)
  Sender: FDA-Public Use
  Company Number: FR-MYLANLABS-2020M1103234

PATIENT
  Age: 58 Year
  Sex: Male
  Weight: 73 kg

DRUGS (8)
  1. KEPPRA [Suspect]
     Active Substance: LEVETIRACETAM
     Indication: EPILEPSY
     Dosage: 1.5 GRAM, QD
     Route: 048
     Dates: start: 201711
  2. KARDEGIC [Suspect]
     Active Substance: ASPIRIN DL-LYSINE
     Indication: CORONARY ARTERY DISEASE
     Dosage: 75 MILLIGRAM, QD
     Route: 048
     Dates: start: 2012
  3. METFORMIN [Suspect]
     Active Substance: METFORMIN HYDROCHLORIDE
     Indication: TYPE 2 DIABETES MELLITUS
     Dosage: 2000 MILLIGRAM, QD
     Route: 048
     Dates: start: 2014
  4. DEROXAT [Suspect]
     Active Substance: PAROXETINE HYDROCHLORIDE
     Indication: DEPRESSION
     Dosage: 30 MILLIGRAM, QD
     Route: 048
     Dates: start: 201702
  5. RAMIPRIL MYLAN 5 MG, COMPRIM? S?CABLE [Suspect]
     Active Substance: RAMIPRIL
     Indication: CORONARY ARTERY DISEASE
     Dosage: UNK
     Route: 048
     Dates: start: 2012
  6. PROCORALAN [Suspect]
     Active Substance: IVABRADINE
     Indication: SINUS TACHYCARDIA
     Dosage: UNK
     Route: 048
     Dates: start: 2013
  7. XANAX [Suspect]
     Active Substance: ALPRAZOLAM
     Indication: ANXIETY
     Dosage: 0.5 MILLIGRAM, QD
     Route: 048
     Dates: start: 201903
  8. CRESTOR [Suspect]
     Active Substance: ROSUVASTATIN CALCIUM
     Indication: CORONARY ARTERY DISEASE
     Dosage: 5 MILLIGRAM, QD
     Route: 048
     Dates: start: 2012

REACTIONS (1)
  - Pancreatitis chronic [Not Recovered/Not Resolved]

NARRATIVE: CASE EVENT DATE: 202003
